FAERS Safety Report 7577407 (Version 62)
Quarter: 2019Q4

REPORT INFORMATION
  Report Type: Report from Study
  Country: CA (occurrence: CA)
  Receive Date: 20100909
  Receipt Date: 20191217
  Transmission Date: 20200122
  Serious: Yes (Hospitalization, Other)
  Sender: FDA-Public Use
  Company Number: PHHY2010CA58351

PATIENT
  Age: 54 Year
  Sex: Female

DRUGS (6)
  1. CLONIDINE. [Concomitant]
     Active Substance: CLONIDINE
     Indication: HYPERTENSION
     Dosage: 0.2 MG, QD
     Route: 065
  2. SANDOSTATIN LAR DEPOT [Suspect]
     Active Substance: OCTREOTIDE ACETATE
     Indication: DIARRHOEA
     Dosage: 20 MG, QMO (EVERY 4 WEEKS)
     Route: 030
     Dates: start: 20100713
  3. SANDOSTATIN LAR DEPOT [Suspect]
     Active Substance: OCTREOTIDE ACETATE
     Dosage: 20 MG, QMO (ONCE A MONTH)
     Route: 030
  4. AMOXICILLIN. [Concomitant]
     Active Substance: AMOXICILLIN
     Indication: ANTIBIOTIC PROPHYLAXIS
     Dosage: 2 G, UNK
     Route: 048
  5. SANDOSTATIN [Suspect]
     Active Substance: OCTREOTIDE ACETATE
     Indication: DIARRHOEA
     Dosage: 500 UG, UNK
     Route: 058
     Dates: start: 200908
  6. SANDOSTATIN LAR DEPOT [Suspect]
     Active Substance: OCTREOTIDE ACETATE
     Dosage: 30 MG, QMO (ONCE A MONTH)
     Route: 030

REACTIONS (65)
  - Enterococcal infection [Unknown]
  - Procedural complication [Unknown]
  - Vascular device infection [Unknown]
  - Pneumonia [Unknown]
  - Hyperhidrosis [Unknown]
  - Insomnia [Unknown]
  - Rash [Unknown]
  - Asthenia [Unknown]
  - Intervertebral disc injury [Unknown]
  - Nerve injury [Unknown]
  - Viral infection [Unknown]
  - Lethargy [Unknown]
  - Weight decreased [Unknown]
  - Influenza [Unknown]
  - Injection site mass [Unknown]
  - Hypotension [Unknown]
  - Dizziness [Unknown]
  - Abdominal pain [Unknown]
  - Sepsis [Recovering/Resolving]
  - Haemorrhage [Unknown]
  - Urine output decreased [Unknown]
  - Nausea [Recovered/Resolved]
  - Muscle spasms [Unknown]
  - Pain [Recovered/Resolved]
  - Localised infection [Unknown]
  - Lower respiratory tract infection [Recovering/Resolving]
  - Nasopharyngitis [Unknown]
  - Oral pain [Unknown]
  - Body temperature decreased [Unknown]
  - Feeding disorder [Unknown]
  - Fall [Unknown]
  - Urinary tract infection [Unknown]
  - Renal failure [Unknown]
  - Vomiting [Unknown]
  - Phlebitis [Unknown]
  - Intervertebral discitis [Unknown]
  - Subclavian vein thrombosis [Unknown]
  - Aphasia [Unknown]
  - Menstrual disorder [Unknown]
  - Blood pressure increased [Unknown]
  - Anxiety [Unknown]
  - Spinal fracture [Unknown]
  - Postoperative wound infection [Recovered/Resolved]
  - Diverticulitis [Unknown]
  - Rectal haemorrhage [Not Recovered/Not Resolved]
  - Malaise [Recovered/Resolved]
  - Ill-defined disorder [Unknown]
  - Cough [Unknown]
  - Staphylococcal infection [Unknown]
  - Diarrhoea [Unknown]
  - Osteomyelitis [Unknown]
  - Pain in extremity [Unknown]
  - Hot flush [Unknown]
  - Blood pressure diastolic decreased [Unknown]
  - Fatigue [Unknown]
  - Injection site pain [Unknown]
  - Decreased appetite [Unknown]
  - Thrombosis [Unknown]
  - Infection [Not Recovered/Not Resolved]
  - Intestinal obstruction [Unknown]
  - Dehydration [Recovering/Resolving]
  - Oral candidiasis [Unknown]
  - Gastrointestinal stoma complication [Unknown]
  - Heart rate increased [Unknown]
  - Product use in unapproved indication [Unknown]

NARRATIVE: CASE EVENT DATE: 2015
